FAERS Safety Report 7272736-9 (Version None)
Quarter: 2011Q1

REPORT INFORMATION
  Report Type: 
  Country: None (occurrence: None)
  Receive Date: 20110203
  Receipt Date: 20110131
  Transmission Date: 20110831
  Serious: No
  Sender: FDA-Public Use
  Company Number: US-PFIZER INC-2011022717

PATIENT
  Sex: Female
  Weight: 77.098 kg

DRUGS (3)
  1. FLUCONAZOLE [Suspect]
     Indication: PYREXIA
  2. FLUCONAZOLE [Suspect]
     Indication: NECROSIS
     Dosage: 200 MG, 2X/DAY
     Route: 048
     Dates: start: 20100804, end: 20110120
  3. LISINOPRIL AND HYDROCHLOROTHIAZIDE [Concomitant]
     Indication: BLOOD PRESSURE ABNORMAL
     Dosage: 10/12.5MG DAILY
     Route: 048

REACTIONS (1)
  - ALOPECIA [None]
